FAERS Safety Report 7315490-4 (Version None)
Quarter: 2011Q1

REPORT INFORMATION
  Report Type: 
  Country: None (occurrence: None)
  Receive Date: 20110215
  Receipt Date: 20110209
  Transmission Date: 20110831
  Serious: Yes (Other)
  Sender: FDA-Public Use
  Company Number: 2010SP045048

PATIENT
  Age: 25 Year
  Sex: Female

DRUGS (2)
  1. FUROSEMIDE [Concomitant]
  2. IMPLANON [Suspect]
     Indication: PRODUCT USED FOR UNKNOWN INDICATION
     Dosage: 1 DF
     Dates: start: 20091001, end: 20100511

REACTIONS (5)
  - POST PROCEDURAL COMPLICATION [None]
  - CONVULSION [None]
  - PREGNANCY WITH IMPLANT CONTRACEPTIVE [None]
  - ABORTION INDUCED [None]
  - DRUG EXPOSURE DURING PREGNANCY [None]
